FAERS Safety Report 19786523 (Version 1)
Quarter: 2021Q3

REPORT INFORMATION
  Report Type: Report from Study
  Country: BR (occurrence: BR)
  Receive Date: 20210903
  Receipt Date: 20210903
  Transmission Date: 20211014
  Serious: Yes (Other)
  Sender: FDA-Public Use
  Company Number: NVSC2020BR286606

PATIENT
  Age: 60 Year
  Sex: Female
  Weight: 60 kg

DRUGS (9)
  1. SYMBICORT [Concomitant]
     Active Substance: BUDESONIDE\FORMOTEROL FUMARATE DIHYDRATE
     Indication: ASTHMA
     Dosage: 2 DF (STARTED MANY YEARS AGO)
     Route: 055
     Dates: start: 202102
  2. XOLAIR [Suspect]
     Active Substance: OMALIZUMAB
     Dosage: 2 DF(150 MG), EVERY 15  DAYS
     Route: 058
     Dates: start: 202007
  3. RELVAR [Concomitant]
     Active Substance: FLUTICASONE FUROATE\VILANTEROL TRIFENATATE
     Indication: ASTHMA
     Dosage: 1 DF, QD(STARTED MANY YEARS AGO)
     Route: 055
  4. DUOVENT [Concomitant]
     Active Substance: FENOTEROL HYDROBROMIDE
     Indication: ASTHMA
     Dosage: 2 DF, QID, 2 MONTHS AGO
     Route: 055
  5. XOLAIR [Suspect]
     Active Substance: OMALIZUMAB
     Dosage: UNK
     Route: 065
     Dates: start: 202011
  6. LOSARTAN. [Suspect]
     Active Substance: LOSARTAN
     Indication: HYPERTENSION
     Dosage: 1 DF, QD, OVER 10 YEARS AGO
     Route: 048
  7. ALENIA [BUDESONIDE/FORMOTEROL FUMARATE] [Suspect]
     Active Substance: BUDESONIDE\FORMOTEROL FUMARATE
     Indication: ASTHMA
     Dosage: 1 DF, BID
     Route: 055
     Dates: start: 202102
  8. XOLAIR [Suspect]
     Active Substance: OMALIZUMAB
     Indication: ASTHMA
     Dosage: MAY OR JUN 2020
     Route: 065
  9. TAMIRIN [Concomitant]
     Indication: ANTIBIOTIC THERAPY
     Dosage: 1 DF, QD
     Route: 065

REACTIONS (14)
  - Anosmia [Recovering/Resolving]
  - Dyspnoea [Not Recovered/Not Resolved]
  - Tachycardia [Recovered/Resolved]
  - Gait disturbance [Unknown]
  - Ageusia [Recovering/Resolving]
  - Infection [Unknown]
  - Product dose omission issue [Unknown]
  - COVID-19 [Recovering/Resolving]
  - Asthma [Not Recovered/Not Resolved]
  - Wheezing [Not Recovered/Not Resolved]
  - Pruritus [Unknown]
  - Sinusitis [Not Recovered/Not Resolved]
  - Hypersensitivity [Unknown]
  - Pain [Recovering/Resolving]

NARRATIVE: CASE EVENT DATE: 20201005
